FAERS Safety Report 17202766 (Version 2)
Quarter: 2020Q1

REPORT INFORMATION
  Report Type: Spontaneous
  Country: CZ (occurrence: CZ)
  Receive Date: 20191226
  Receipt Date: 20200101
  Transmission Date: 20200409
  Serious: Yes (Other)
  Sender: FDA-Public Use
  Company Number: CZ-MYLANLABS-2019M1126314

PATIENT
  Sex: Female

DRUGS (5)
  1. LETROZOLE. [Suspect]
     Active Substance: LETROZOLE
     Indication: PRODUCT USED FOR UNKNOWN INDICATION
     Dosage: UNK
     Route: 065
  2. TROZEL [Suspect]
     Active Substance: LETROZOLE
     Indication: PRODUCT USED FOR UNKNOWN INDICATION
     Dosage: UNK
     Route: 065
     Dates: start: 20190812
  3. ZOLADEX [Concomitant]
     Active Substance: GOSERELIN ACETATE
     Indication: PRODUCT USED FOR UNKNOWN INDICATION
     Dosage: UNK
     Route: 065
  4. XGEVA [Suspect]
     Active Substance: DENOSUMAB
     Indication: PRODUCT USED FOR UNKNOWN INDICATION
     Dosage: UNK
     Route: 065
     Dates: start: 20190812
  5. KISQALI [Suspect]
     Active Substance: RIBOCICLIB
     Indication: PRODUCT USED FOR UNKNOWN INDICATION
     Dosage: 200 MG, QD (3-0-0) (ON EMPTY STOMACH OR 2 HOURS AFTER MEAL, SWALLOW WITH WATER
     Route: 065
     Dates: start: 20190613, end: 20190627

REACTIONS (10)
  - Neutropenia [Unknown]
  - Malnutrition [Unknown]
  - Bone marrow infiltration [Unknown]
  - Hypocalcaemia [Unknown]
  - Weight decreased [Unknown]
  - Aspartate aminotransferase increased [Recovered/Resolved]
  - Electrocardiogram QT prolonged [Unknown]
  - Alanine aminotransferase increased [Recovered/Resolved]
  - Pancytopenia [Unknown]
  - Metastases to bone [Unknown]

NARRATIVE: CASE EVENT DATE: 20190715
